FAERS Safety Report 8069012-3 (Version None)
Quarter: 2012Q1

REPORT INFORMATION
  Report Type: 
  Country: None (occurrence: None)
  Receive Date: 20120118
  Receipt Date: 20120103
  Transmission Date: 20120608
  Serious: Yes (Hospitalization)
  Sender: FDA-Public Use
  Company Number: 2012AM005948

PATIENT
  Age: 49 Year
  Sex: Female
  Weight: 179.1708 kg

DRUGS (36)
  1. INSULIN [Concomitant]
  2. NOVOLOG [Concomitant]
  3. MUCINEX [Concomitant]
  4. SYNTHROID [Concomitant]
  5. PROZAC [Concomitant]
  6. HUMULIN U [Concomitant]
  7. ADVAIR DISKUS 100/50 [Concomitant]
  8. VALIUM [Concomitant]
  9. VERAMIST NASAL SPRAY [Concomitant]
  10. PERCOCET [Concomitant]
  11. PHENERGAN [Concomitant]
  12. EXFORGE [Concomitant]
  13. CLONIDINE [Concomitant]
  14. MECLIZINE [Concomitant]
  15. VENTOLIN [Concomitant]
  16. PROZAC [Concomitant]
  17. NEURONTIN [Concomitant]
  18. SPIRONOLACTONE [Concomitant]
  19. ZOLOFT [Concomitant]
  20. SYMLIN [Suspect]
     Indication: TYPE 2 DIABETES MELLITUS
     Dosage: 120 MCG;TID;SC ; 60 MCG;TID;SC ; 45 MCG;TID;SC ; 30 MCG;TID;SC ; 120 MCG;TID;SC
     Route: 058
     Dates: start: 20111221
  21. SYMLIN [Suspect]
     Indication: TYPE 1 DIABETES MELLITUS
     Dosage: 120 MCG;TID;SC ; 60 MCG;TID;SC ; 45 MCG;TID;SC ; 30 MCG;TID;SC ; 120 MCG;TID;SC
     Route: 058
     Dates: start: 20111221
  22. SYMLIN [Suspect]
     Indication: TYPE 2 DIABETES MELLITUS
     Dosage: 120 MCG;TID;SC ; 60 MCG;TID;SC ; 45 MCG;TID;SC ; 30 MCG;TID;SC ; 120 MCG;TID;SC
     Route: 058
     Dates: start: 20051201, end: 20051201
  23. SYMLIN [Suspect]
     Indication: TYPE 1 DIABETES MELLITUS
     Dosage: 120 MCG;TID;SC ; 60 MCG;TID;SC ; 45 MCG;TID;SC ; 30 MCG;TID;SC ; 120 MCG;TID;SC
     Route: 058
     Dates: start: 20051201, end: 20051201
  24. SYMLIN [Suspect]
     Indication: TYPE 2 DIABETES MELLITUS
     Dosage: 120 MCG;TID;SC ; 60 MCG;TID;SC ; 45 MCG;TID;SC ; 30 MCG;TID;SC ; 120 MCG;TID;SC
     Route: 058
     Dates: end: 20110901
  25. SYMLIN [Suspect]
     Indication: TYPE 1 DIABETES MELLITUS
     Dosage: 120 MCG;TID;SC ; 60 MCG;TID;SC ; 45 MCG;TID;SC ; 30 MCG;TID;SC ; 120 MCG;TID;SC
     Route: 058
     Dates: end: 20110901
  26. LISINOPRIL [Concomitant]
  27. CARDOVIL [Concomitant]
  28. REGLAN [Concomitant]
  29. RESTORIL [Concomitant]
  30. LASIX [Concomitant]
  31. NEXIUM [Concomitant]
  32. SKELAXIN [Concomitant]
  33. ONDANSETRON HCL [Concomitant]
  34. SYMLIN [Suspect]
     Indication: TYPE 2 DIABETES MELLITUS
     Dates: start: 20110901, end: 20111220
  35. SYMLIN [Suspect]
     Indication: TYPE 1 DIABETES MELLITUS
     Dates: start: 20110901, end: 20111220
  36. XANAX [Concomitant]

REACTIONS (28)
  - HYPERGLYCAEMIA [None]
  - HERNIA REPAIR [None]
  - WEIGHT INCREASED [None]
  - HYPOTENSION [None]
  - DEPRESSION [None]
  - ABSCESS [None]
  - BLOOD GLUCOSE DECREASED [None]
  - SLUGGISHNESS [None]
  - PERFUME SENSITIVITY [None]
  - NEEDLE ISSUE [None]
  - CARDIAC ARREST [None]
  - VOMITING [None]
  - DIZZINESS [None]
  - OVERDOSE [None]
  - DRUG PRESCRIBING ERROR [None]
  - UNRESPONSIVE TO STIMULI [None]
  - SUICIDE ATTEMPT [None]
  - ABDOMINAL PAIN [None]
  - PNEUMONIA [None]
  - RESPIRATORY DISTRESS [None]
  - DRUG INEFFECTIVE [None]
  - AGITATION [None]
  - URINE KETONE BODY PRESENT [None]
  - ASTHMA [None]
  - GLYCOSYLATED HAEMOGLOBIN INCREASED [None]
  - DYSSTASIA [None]
  - WRONG TECHNIQUE IN DRUG USAGE PROCESS [None]
  - PAIN [None]
